FAERS Safety Report 6448451-8 (Version None)
Quarter: 2009Q4

REPORT INFORMATION
  Report Type: 
  Country: None (occurrence: None)
  Receive Date: 20091120
  Receipt Date: 20091111
  Transmission Date: 20100525
  Serious: Yes (Hospitalization, Other)
  Sender: FDA-Public Use
  Company Number: US-AMGEN-QUU371287

PATIENT
  Sex: Female
  Weight: 77.2 kg

DRUGS (4)
  1. ENBREL [Suspect]
     Indication: PSORIATIC ARTHROPATHY
     Route: 058
     Dates: start: 20050901
  2. ENBREL [Suspect]
     Indication: PSORIASIS
  3. SYNTHROID [Concomitant]
     Dates: start: 20091028
  4. ORAL CONTRACEPTIVE NOS [Concomitant]
     Dates: start: 19920101

REACTIONS (4)
  - DEPRESSION [None]
  - HYPOTHYROIDISM [None]
  - PSORIASIS [None]
  - THYROID NEOPLASM [None]
